FAERS Safety Report 4712262-1 (Version None)
Quarter: 2005Q3

REPORT INFORMATION
  Report Type: 
  Country: None (occurrence: None)
  Receive Date: 20050712
  Receipt Date: 20050705
  Transmission Date: 20060218
  Serious: Yes (Hospitalization)
  Sender: FDA-Public Use
  Company Number: US-GLAXOSMITHKLINE-B0386882A

PATIENT
  Age: 83 Year
  Sex: Female

DRUGS (9)
  1. VALACYCLOVIR HCL [Suspect]
     Indication: HERPES ZOSTER
     Dosage: 1500MG PER DAY
     Route: 048
     Dates: start: 20050616
  2. TRAMADOL HCL [Concomitant]
     Dosage: 50MG PER DAY
     Route: 048
  3. DIGOXIN [Concomitant]
     Dosage: 62.5MCG PER DAY
     Route: 048
  4. EZETIMIBE [Concomitant]
     Dosage: 10MG PER DAY
     Route: 048
  5. AMLODIPINE [Concomitant]
     Dosage: 5MG PER DAY
     Route: 048
  6. LANSOPRAZOLE [Concomitant]
     Dosage: 15MG PER DAY
     Route: 048
  7. ASPIRIN [Concomitant]
     Dosage: 75MG PER DAY
     Route: 048
  8. BUMETANIDE [Concomitant]
     Dosage: 1MG PER DAY
     Route: 065
  9. CALCICHEW [Concomitant]
     Dosage: 1UNIT PER DAY
     Route: 065

REACTIONS (5)
  - CONFUSIONAL STATE [None]
  - CONSTIPATION [None]
  - DIZZINESS [None]
  - MALAISE [None]
  - VOMITING [None]
